FAERS Safety Report 9089134 (Version 1)
Quarter: 2013Q1

REPORT INFORMATION
  Report Type: Report from Study
  Country: US (occurrence: US)
  Receive Date: 20130201
  Receipt Date: 20130201
  Transmission Date: 20140127
  Serious: No
  Sender: FDA-Public Use
  Company Number: US-ABBOTT-12P-163-1018610-00

PATIENT
  Age: 25 Year
  Sex: Female

DRUGS (10)
  1. HUMIRA [Suspect]
     Indication: PSORIATIC ARTHROPATHY
     Route: 058
  2. METHOTREXATE [Concomitant]
     Indication: PRODUCT USED FOR UNKNOWN INDICATION
     Dosage: EVERY WEEK
  3. MULTIVITAMIN [Concomitant]
     Indication: PRODUCT USED FOR UNKNOWN INDICATION
  4. FOLIC ACID [Concomitant]
     Indication: ARTHRITIS
  5. CORTISONE [Concomitant]
     Indication: PSORIASIS
     Route: 061
  6. ORTHO-TRI-CYCLEN LO [Concomitant]
     Indication: PRODUCT USED FOR UNKNOWN INDICATION
     Dosage: STOPPED DUE TO INSURANCE CHANGE/COST
  7. EMOQUETTE [Concomitant]
     Indication: CONTRACEPTION
  8. CELEXA [Concomitant]
     Indication: DEPRESSION
  9. CELEXA [Concomitant]
     Indication: ANXIETY
  10. BUSPIRONE [Concomitant]

REACTIONS (7)
  - Incorrect dose administered [Not Recovered/Not Resolved]
  - Injection site pain [Not Recovered/Not Resolved]
  - Incorrect storage of drug [Not Recovered/Not Resolved]
  - Nasopharyngitis [Unknown]
  - Ear disorder [Unknown]
  - Decreased appetite [Unknown]
  - Pyrexia [Recovered/Resolved]
